FAERS Safety Report 7097209-8 (Version None)
Quarter: 2010Q4

REPORT INFORMATION
  Report Type: 
  Country: None (occurrence: None)
  Receive Date: 20101111
  Receipt Date: 20100111
  Transmission Date: 20110411
  Serious: No
  Sender: FDA-Public Use
  Company Number: US-KINGPHARMUSA00001-K201000027

PATIENT
  Age: 35 Year
  Sex: Female

DRUGS (1)
  1. EMBEDA [Suspect]
     Indication: CANCER PAIN
     Dosage: 50 MG, BID
     Route: 065
     Dates: start: 20091001

REACTIONS (4)
  - DRUG WITHDRAWAL SYNDROME [None]
  - HYPERHIDROSIS [None]
  - INTENTIONAL DRUG MISUSE [None]
  - TREMOR [None]
